FAERS Safety Report 8391034-3 (Version None)
Quarter: 2012Q2

REPORT INFORMATION
  Report Type: 
  Country: None (occurrence: None)
  Receive Date: 20120515
  Receipt Date: 20120510
  Transmission Date: 20120825
  Serious: Yes (Death)
  Sender: FDA-Public Use
  Company Number: 2012SP024868

PATIENT
  Age: 42 Year
  Sex: Male

DRUGS (1)
  1. NOXAFIL [Suspect]
     Indication: ZYGOMYCOSIS
     Dosage: 400 MG;BID;PO
     Route: 048
     Dates: start: 20110203, end: 20110305

REACTIONS (1)
  - SEPTIC SHOCK [None]
